FAERS Safety Report 14879758 (Version 2)
Quarter: 2018Q2

REPORT INFORMATION
  Report Type: Spontaneous
  Country: US (occurrence: US)
  Receive Date: 20180511
  Receipt Date: 20180611
  Transmission Date: 20180711
  Serious: No
  Sender: FDA-Public Use
  Company Number: US-009507513-1805USA004297

PATIENT
  Age: 34 Year
  Sex: Female
  Weight: 115.2 kg

DRUGS (1)
  1. NEXPLANON [Suspect]
     Active Substance: ETONOGESTREL
     Indication: CONTRACEPTION
     Dosage: IMPLANT IN LEFT ARM
     Route: 059
     Dates: start: 20170309

REACTIONS (3)
  - Device breakage [Not Recovered/Not Resolved]
  - No adverse event [Unknown]
  - Device kink [Not Recovered/Not Resolved]

NARRATIVE: CASE EVENT DATE: 20180420
